FAERS Safety Report 8811220 (Version 1)
Quarter: 2012Q4

REPORT INFORMATION
  Report Type: Spontaneous
  Country: US (occurrence: None)
  Receive Date: 20120924
  Receipt Date: 20120924
  Transmission Date: 20130627
  Serious: Yes (Hospitalization)
  Sender: FDA-Public Use
  Company Number: 2012US-004378

PATIENT
  Age: 49 Year
  Sex: Female

DRUGS (22)
  1. OMONTYS (PEGINESATIDE) SOLUTION FOR INJECTION [Suspect]
     Indication: NEPHROGENIC ANEMIA
     Route: 042
     Dates: start: 20120907, end: 20120907
  2. CALCIUM ACETATE (CALCIUM ACETATE) [Concomitant]
  3. CELLCEPT (MYCOPHENOLATE MOFETIL) TABLET [Concomitant]
  4. COLACE (DOCUSATE SODIUM) [Concomitant]
  5. FOLIC ACID (FOLIC ACID) [Concomitant]
  6. OSCAL (CALCITRIOL) [Concomitant]
  7. PLAQUENIL (HYDROXYCHLOROQUINE PHOSPHATE) [Concomitant]
  8. PREDNISONE (PREDNISONE) [Concomitant]
  9. RENAGEL (SEVELAMER) [Concomitant]
  10. SENSIPAR (CINACALCET HYDROCHLORIDE) [Concomitant]
  11. VITAMIN E (TOCOPHEROL) [Concomitant]
  12. AMBIEN CR (ZOLPIDEM TARTRATE) [Concomitant]
  13. (DIPHENHYDRAMINE HYDROCHLORIDE) [Concomitant]
  14. BISACODYL (BISACODYL) [Concomitant]
  15. CALCIFEROL (ERGOCALCIFEROL) [Concomitant]
  16. HEPARIN (HEPARIN) [Concomitant]
  17. ROXICODONE (OXYCODONE HYDROCHLORIDE) [Concomitant]
  18. TYLENOL (PARACETAMOL) [Concomitant]
  19. HYDROCODONE/APAP (HYDROCODONE BITARTRATE, PARACETAMOL) [Concomitant]
  20. PHENERGAN (PROMETHAZINE) [Concomitant]
  21. HECTOROL (DOXERCALCIFEROL) [Concomitant]
  22. EPOGEN (EPOETIN ALFA) [Concomitant]

REACTIONS (8)
  - Anaphylactic reaction [None]
  - Syncope [None]
  - Hyperhidrosis [None]
  - Cough [None]
  - Angioedema [None]
  - Vomiting [None]
  - Dyspnoea [None]
  - Pruritus [None]
